FAERS Safety Report 17827208 (Version 2)
Quarter: 2020Q2

REPORT INFORMATION
  Report Type: Spontaneous
  Country: US (occurrence: US)
  Receive Date: 20200527
  Receipt Date: 20200528
  Transmission Date: 20200714
  Serious: Yes (Life-Threatening, Hospitalization, Other)
  Sender: FDA-Public Use
  Company Number: US-SA-2020SA133414

PATIENT
  Age: 51 Year
  Sex: Female

DRUGS (26)
  1. DIPHENHYDRAMINE. [Suspect]
     Active Substance: DIPHENHYDRAMINE
     Indication: BIPOLAR DISORDER
     Dosage: TWO ROUNDS ON DAY 2 AND DAY 3
     Route: 030
  2. OLANZAPINE. [Suspect]
     Active Substance: OLANZAPINE
     Dosage: ON DAY 2 TWO ROUNDS
     Route: 048
  3. OSELTAMIVIR [Concomitant]
     Active Substance: OSELTAMIVIR
     Indication: INFLUENZA
  4. LORAZEPAM. [Suspect]
     Active Substance: LORAZEPAM
     Dosage: ON DAY 4 THE DOSE WAS CHANGED TO Q8H
     Route: 048
  5. OLANZAPINE. [Suspect]
     Active Substance: OLANZAPINE
     Dosage: AS NECESSARY AT DAY 4
  6. VALPROIC ACID. [Interacting]
     Active Substance: VALPROIC ACID
     Indication: MOOD SWINGS
     Dosage: EVERY NIGHT AT BEDTIME (QHS)
     Route: 048
  7. CLONAZEPAM. [Suspect]
     Active Substance: CLONAZEPAM
     Dosage: ON DAY 2 DOSE INCREASED TO 1 MG PO
     Route: 048
  8. OLANZAPINE. [Suspect]
     Active Substance: OLANZAPINE
     Dosage: ON DAY 1
  9. CHLORPROMAZINE. [Interacting]
     Active Substance: CHLORPROMAZINE
     Indication: AGITATION
     Dosage: ON DAY 4 THE DOSE WAS AGAIN CHANGED TO 100 MG PO/IM
     Route: 030
  10. CHLORPROMAZINE. [Interacting]
     Active Substance: CHLORPROMAZINE
     Dosage: ON DAY 4 THE DOSE WAS AGAIN CHANGED TO 100 MG PO/IM
     Route: 048
  11. CHLORPROMAZINE. [Interacting]
     Active Substance: CHLORPROMAZINE
     Dosage: ORAL / INTRAMUSCULAR ON DAY 3
     Route: 048
  12. VALPROIC ACID. [Interacting]
     Active Substance: VALPROIC ACID
     Dosage: EVERY MORNING (QAM)
     Route: 048
  13. LORAZEPAM. [Suspect]
     Active Substance: LORAZEPAM
     Dosage: ON DAY 4
     Route: 030
  14. LORAZEPAM. [Suspect]
     Active Substance: LORAZEPAM
     Dosage: TWO ROUNDS ON DAY 2 AND DAY 3
     Route: 030
  15. CLONAZEPAM. [Suspect]
     Active Substance: CLONAZEPAM
     Indication: BIPOLAR DISORDER
     Dosage: AT DAY 1
     Route: 048
  16. CHLORPROMAZINE. [Interacting]
     Active Substance: CHLORPROMAZINE
     Dosage: ON DAY 4
     Route: 030
  17. CHLORPROMAZINE. [Interacting]
     Active Substance: CHLORPROMAZINE
     Dosage: ON DAY 4 THE DOSE WAS CHANGED TO PO 200 MG Q8H.
     Route: 048
  18. LORAZEPAM. [Suspect]
     Active Substance: LORAZEPAM
     Dosage: ORAL / INTRAMUSCULAR ON DAY 3
     Route: 048
  19. LORAZEPAM. [Suspect]
     Active Substance: LORAZEPAM
     Dosage: ORAL / INTRAMUSCULAR ON DAY 4
     Route: 030
  20. OLANZAPINE. [Suspect]
     Active Substance: OLANZAPINE
     Indication: BIPOLAR DISORDER
     Dosage: ON DAY 1 Q6H; AS AN WHEN NECESSARY (PRN)
  21. CHLORPROMAZINE. [Interacting]
     Active Substance: CHLORPROMAZINE
     Dosage: ORAL / INTRAMUSCULAR ON DAY 3
     Route: 030
  22. CHLORPROMAZINE. [Interacting]
     Active Substance: CHLORPROMAZINE
     Dosage: TWO ROUNDS ON DAY 2
     Route: 030
  23. LORAZEPAM. [Suspect]
     Active Substance: LORAZEPAM
     Dosage: ORAL / INTRAMUSCULAR ON DAY 4
     Route: 048
  24. LORAZEPAM. [Suspect]
     Active Substance: LORAZEPAM
     Dosage: ORAL / INTRAMUSCULAR ON DAY 3
     Route: 030
  25. OLANZAPINE. [Suspect]
     Active Substance: OLANZAPINE
     Dosage: ON DAY 2 DOSE WAS INCREASED
     Route: 048
  26. HALOPERIDOL. [Suspect]
     Active Substance: HALOPERIDOL
     Indication: BIPOLAR DISORDER
     Dosage: TWO ROUNDS ON DAY 2 AND DAY 3

REACTIONS (8)
  - Dysarthria [Unknown]
  - Deep vein thrombosis [Recovered/Resolved]
  - Respiratory failure [Recovered/Resolved]
  - Drug interaction [Recovered/Resolved]
  - Hypercapnia [Recovered/Resolved]
  - Somnolence [Unknown]
  - Pulmonary embolism [Recovered/Resolved]
  - Respiratory distress [Recovered/Resolved]
